FAERS Safety Report 15879013 (Version 1)
Quarter: 2019Q1

REPORT INFORMATION
  Report Type: Spontaneous
  Country: US (occurrence: US)
  Receive Date: 20190128
  Receipt Date: 20190128
  Transmission Date: 20190417
  Serious: Yes (Hospitalization, Other)
  Sender: FDA-Public Use
  Company Number: US-HORIZON-KRY-0042-2019

PATIENT
  Age: 54 Year
  Sex: Male

DRUGS (1)
  1. KRYSTEXXA [Suspect]
     Active Substance: PEGLOTICASE
     Indication: GOUT
     Dosage: 8 MG IV Q 2 WEEKS
     Dates: start: 20181109, end: 20181214

REACTIONS (6)
  - Swelling face [Recovering/Resolving]
  - Cerebrovascular accident [Recovering/Resolving]
  - Hypersensitivity [Recovering/Resolving]
  - Atrial septal defect [Recovering/Resolving]
  - Carotid artery aneurysm [Recovering/Resolving]
  - Thrombosis [Recovering/Resolving]

NARRATIVE: CASE EVENT DATE: 20181214
